FAERS Safety Report 25235684 (Version 1)
Quarter: 2025Q2

REPORT INFORMATION
  Report Type: Spontaneous
  Country: FR (occurrence: FR)
  Receive Date: 20250424
  Receipt Date: 20250424
  Transmission Date: 20250716
  Serious: Yes (Hospitalization)
  Sender: JOHNSON AND JOHNSON
  Company Number: FR-JNJFOC-20250426539

PATIENT
  Sex: Female

DRUGS (6)
  1. SPRAVATO [Suspect]
     Active Substance: ESKETAMINE
     Indication: Product used for unknown indication
     Dosage: 3 DEVICES
     Route: 045
  2. SPRAVATO [Suspect]
     Active Substance: ESKETAMINE
     Dosage: 3 DEVICES
     Route: 045
  3. VENLAFAXINE [Concomitant]
     Active Substance: VENLAFAXINE HYDROCHLORIDE
  4. LEVOTHYROXINE [Concomitant]
     Active Substance: LEVOTHYROXINE
  5. LORAZEPAM [Concomitant]
     Active Substance: LORAZEPAM
  6. LORAZEPAM [Concomitant]
     Active Substance: LORAZEPAM

REACTIONS (2)
  - Suicidal ideation [Unknown]
  - Abnormal behaviour [Unknown]
